FAERS Safety Report 24891439 (Version 3)
Quarter: 2025Q1

REPORT INFORMATION
  Report Type: Spontaneous
  Country: US (occurrence: US)
  Receive Date: 20250127
  Receipt Date: 20250305
  Transmission Date: 20250409
  Serious: No
  Sender: PFIZER
  Company Number: US-PFIZER INC-PV202500009798

PATIENT
  Age: 62 Year
  Sex: Female

DRUGS (1)
  1. IBRANCE [Suspect]
     Active Substance: PALBOCICLIB

REACTIONS (6)
  - Fatigue [Recovering/Resolving]
  - Nausea [Unknown]
  - Alopecia [Unknown]
  - Laboratory test abnormal [Unknown]
  - Full blood count abnormal [Recovered/Resolved]
  - Musculoskeletal discomfort [Unknown]
